FAERS Safety Report 21228442 (Version 10)
Quarter: 2023Q1

REPORT INFORMATION
  Report Type: Spontaneous
  Country: US (occurrence: US)
  Receive Date: 20220818
  Receipt Date: 20230207
  Transmission Date: 20230418
  Serious: No
  Sender: FDA-Public Use
  Company Number: US-PFIZER INC-202201038683

PATIENT
  Age: 48 Year
  Sex: Female
  Weight: 108.86 kg

DRUGS (3)
  1. SOMATROPIN [Suspect]
     Active Substance: SOMATROPIN
     Indication: Hypopituitarism
     Dosage: 0.4 MG, DAILY
     Route: 058
     Dates: start: 2022
  2. SOMATROPIN [Suspect]
     Active Substance: SOMATROPIN
     Indication: Growth hormone deficiency
  3. CORTEF [Concomitant]
     Active Substance: HYDROCORTISONE
     Dosage: UNK

REACTIONS (4)
  - Confusional state [Unknown]
  - Memory impairment [Unknown]
  - Device leakage [Recovered/Resolved]
  - Product dose omission issue [Recovered/Resolved with Sequelae]

NARRATIVE: CASE EVENT DATE: 20220803
